FAERS Safety Report 14869536 (Version 1)
Quarter: 2018Q2

REPORT INFORMATION
  Report Type: Spontaneous
  Country: US (occurrence: US)
  Receive Date: 20180509
  Receipt Date: 20180509
  Transmission Date: 20180711
  Serious: Yes (Hospitalization)
  Sender: FDA-Public Use
  Company Number: US-BAYER-2018-083281

PATIENT
  Sex: Male
  Weight: 1.5 kg

DRUGS (1)
  1. PARACETAMOL [Suspect]
     Active Substance: ACETAMINOPHEN
     Indication: ABDOMINAL PAIN

REACTIONS (8)
  - Sepsis [None]
  - Meningitis [None]
  - Bronchopulmonary dysplasia [None]
  - Foetal exposure during pregnancy [None]
  - Premature baby [None]
  - Low birth weight baby [None]
  - Herpes virus infection [None]
  - Pneumonia [None]
